FAERS Safety Report 13015039 (Version 1)
Quarter: 2016Q4

REPORT INFORMATION
  Report Type: Spontaneous
  Country: IT (occurrence: IT)
  Receive Date: 20161210
  Receipt Date: 20161210
  Transmission Date: 20170207
  Serious: Yes (Hospitalization, Other)
  Sender: FDA-Public Use
  Company Number: IT-ACCORD-046363

PATIENT
  Age: 67 Year
  Sex: Male

DRUGS (7)
  1. PIPERACILLIN/TAZOBACTAM [Suspect]
     Active Substance: PIPERACILLIN SODIUM\TAZOBACTAM SODIUM
     Indication: POSTOPERATIVE WOUND INFECTION
  2. PREDNISONE. [Suspect]
     Active Substance: PREDNISONE
     Indication: LIVER TRANSPLANT
  3. VORICONAZOLE. [Interacting]
     Active Substance: VORICONAZOLE
     Indication: ASPERGILLUS INFECTION
     Dosage: 400 MG EVERY 12 H LOADING DOSE,?FOLLOWED BY 200 MG EVERY 12 H
     Route: 048
  4. POSACONAZOLE [Concomitant]
     Active Substance: POSACONAZOLE
     Indication: ANTIFUNGAL TREATMENT
     Route: 048
  5. TACROLIMUS. [Suspect]
     Active Substance: TACROLIMUS
     Indication: LIVER TRANSPLANT
  6. MYCOPHENOLIC ACID. [Suspect]
     Active Substance: MYCOPHENOLIC ACID
     Indication: LIVER TRANSPLANT
  7. CICLOSPORIN [Interacting]
     Active Substance: CYCLOSPORINE
     Indication: LIVER TRANSPLANT

REACTIONS (8)
  - Febrile neutropenia [Unknown]
  - Cytomegalovirus infection [Recovered/Resolved]
  - Nephropathy toxic [Unknown]
  - Drug interaction [Unknown]
  - Neurotoxicity [Unknown]
  - Drug-induced liver injury [Unknown]
  - Bronchopulmonary aspergillosis [Recovered/Resolved]
  - Drug intolerance [Unknown]
